FAERS Safety Report 12628397 (Version 1)
Quarter: 2016Q3

REPORT INFORMATION
  Report Type: Spontaneous
  Country: US (occurrence: None)
  Receive Date: 20160805
  Receipt Date: 20160805
  Transmission Date: 20161109
  Serious: No
  Sender: FDA-Public Use
  Company Number: None

PATIENT
  Age: 86 Year
  Sex: Female
  Weight: 69.4 kg

DRUGS (4)
  1. CLONAZEPAM. [Suspect]
     Active Substance: CLONAZEPAM
     Indication: INSOMNIA
     Dosage: .5 MGS 20 PILLS AS NEEDED BY MOUTH
     Route: 048
     Dates: start: 20160712, end: 20160712
  2. CLONAZEPAM. [Suspect]
     Active Substance: CLONAZEPAM
     Indication: ANXIETY
     Dosage: .5 MGS 20 PILLS AS NEEDED BY MOUTH
     Route: 048
     Dates: start: 20160712, end: 20160712
  3. ATENOLOL. [Concomitant]
     Active Substance: ATENOLOL
  4. TYLENOL [Concomitant]
     Active Substance: ACETAMINOPHEN

REACTIONS (2)
  - Feeling jittery [None]
  - Product substitution issue [None]

NARRATIVE: CASE EVENT DATE: 20160712
